FAERS Safety Report 23687981 (Version 3)
Quarter: 2024Q2

REPORT INFORMATION
  Report Type: Spontaneous
  Country: US (occurrence: US)
  Receive Date: 20240329
  Receipt Date: 20240510
  Transmission Date: 20240716
  Serious: Yes (Other)
  Sender: FDA-Public Use
  Company Number: US-BIOGEN-2024BI01257485

PATIENT
  Age: 56 Year
  Sex: Female

DRUGS (89)
  1. TECFIDERA [Suspect]
     Active Substance: DIMETHYL FUMARATE
     Indication: Multiple sclerosis
     Route: 050
     Dates: start: 20141031, end: 20151218
  2. TECFIDERA [Suspect]
     Active Substance: DIMETHYL FUMARATE
     Route: 050
     Dates: start: 20150112
  3. TYSABRI [Suspect]
     Active Substance: NATALIZUMAB
     Indication: Product used for unknown indication
     Route: 050
     Dates: start: 20160114, end: 20160608
  4. TYSABRI [Suspect]
     Active Substance: NATALIZUMAB
     Route: 050
  5. GABAPENTIN [Concomitant]
     Active Substance: GABAPENTIN
     Indication: Product used for unknown indication
     Dosage: 180 TABLET*11, 11/11/2019, 180 TABLET*10, 11/05/2018, 180 (UNSPECIFIED)*10, 11/06/2017, 180 TABLE...
     Route: 050
     Dates: start: 20120214
  6. GABAPENTIN [Concomitant]
     Active Substance: GABAPENTIN
     Route: 050
     Dates: start: 20120814
  7. GABAPENTIN [Concomitant]
     Active Substance: GABAPENTIN
     Route: 050
     Dates: start: 20130212
  8. GABAPENTIN [Concomitant]
     Active Substance: GABAPENTIN
     Route: 050
     Dates: start: 20130813
  9. GABAPENTIN [Concomitant]
     Active Substance: GABAPENTIN
     Route: 050
     Dates: start: 20140211
  10. GABAPENTIN [Concomitant]
     Active Substance: GABAPENTIN
     Route: 050
     Dates: start: 20140425
  11. GABAPENTIN [Concomitant]
     Active Substance: GABAPENTIN
     Route: 050
     Dates: start: 20140916
  12. GABAPENTIN [Concomitant]
     Active Substance: GABAPENTIN
     Route: 050
     Dates: start: 20140926
  13. GABAPENTIN [Concomitant]
     Active Substance: GABAPENTIN
     Route: 050
     Dates: start: 20141031
  14. ROPINIROLE HYDROCHLORIDE [Concomitant]
     Active Substance: ROPINIROLE HYDROCHLORIDE
     Indication: Product used for unknown indication
     Route: 050
     Dates: start: 20140211
  15. LIPITOR [Concomitant]
     Active Substance: ATORVASTATIN CALCIUM
     Indication: Product used for unknown indication
     Route: 050
     Dates: start: 20140916
  16. LIPITOR [Concomitant]
     Active Substance: ATORVASTATIN CALCIUM
     Route: 050
     Dates: start: 20140926
  17. LIPITOR [Concomitant]
     Active Substance: ATORVASTATIN CALCIUM
     Route: 050
     Dates: start: 20141031
  18. TIZANIDINE HYDROCHLORIDE [Concomitant]
     Active Substance: TIZANIDINE HYDROCHLORIDE
     Indication: Product used for unknown indication
     Dosage: BID
     Route: 050
     Dates: start: 20140916
  19. TIZANIDINE HYDROCHLORIDE [Concomitant]
     Active Substance: TIZANIDINE HYDROCHLORIDE
     Dosage: BID
     Route: 050
     Dates: start: 20140926
  20. TIZANIDINE HYDROCHLORIDE [Concomitant]
     Active Substance: TIZANIDINE HYDROCHLORIDE
     Dosage: BID
     Route: 050
     Dates: start: 20141031
  21. PIOGLITAZONE [Concomitant]
     Active Substance: PIOGLITAZONE
     Indication: Product used for unknown indication
     Route: 050
     Dates: start: 20210108
  22. ARIPIPRAZOLE [Concomitant]
     Active Substance: ARIPIPRAZOLE
     Indication: Product used for unknown indication
     Route: 050
     Dates: start: 20210108
  23. LISINOPRIL [Concomitant]
     Active Substance: LISINOPRIL
     Indication: Product used for unknown indication
     Dosage: QAM
     Route: 050
     Dates: start: 20210108
  24. VITAMIN D3 [Concomitant]
     Active Substance: CHOLECALCIFEROL
     Indication: Product used for unknown indication
     Route: 050
     Dates: start: 20210108
  25. OCREVUS [Concomitant]
     Active Substance: OCRELIZUMAB
     Indication: Product used for unknown indication
     Route: 050
     Dates: start: 20211019
  26. DIPHENHYDRAMINE HYDROCHLORIDE [Concomitant]
     Active Substance: DIPHENHYDRAMINE HYDROCHLORIDE
     Indication: Product used for unknown indication
     Dosage: 0.5-1 ML, IV PUSH OVER 3-5 MINS
     Route: 050
  27. METHYLPREDNISOLONE SODIUM SUCCINATE [Concomitant]
     Active Substance: METHYLPREDNISOLONE SODIUM SUCCINATE
     Indication: Product used for unknown indication
     Dosage: IV OVER 3-5 MINS
     Route: 050
  28. POTASSIUM [Concomitant]
     Active Substance: POTASSIUM
     Indication: Product used for unknown indication
     Route: 050
  29. BENAZEPRIL HYDROCHLORIDE [Concomitant]
     Active Substance: BENAZEPRIL HYDROCHLORIDE
     Indication: Product used for unknown indication
     Route: 050
     Dates: start: 20120814
  30. OMEPRAZOLE [Concomitant]
     Active Substance: DONEPEZIL HYDROCHLORIDE\OMEPRAZOLE\OMEPRAZOLE MAGNESIUM
     Indication: Product used for unknown indication
     Route: 050
     Dates: start: 20120814
  31. OMEPRAZOLE [Concomitant]
     Active Substance: DONEPEZIL HYDROCHLORIDE\OMEPRAZOLE\OMEPRAZOLE MAGNESIUM
     Route: 050
     Dates: start: 20130212
  32. OMEPRAZOLE [Concomitant]
     Active Substance: DONEPEZIL HYDROCHLORIDE\OMEPRAZOLE\OMEPRAZOLE MAGNESIUM
     Route: 050
     Dates: start: 20140916
  33. OMEPRAZOLE [Concomitant]
     Active Substance: DONEPEZIL HYDROCHLORIDE\OMEPRAZOLE\OMEPRAZOLE MAGNESIUM
     Route: 050
     Dates: start: 20140926
  34. OMEPRAZOLE [Concomitant]
     Active Substance: DONEPEZIL HYDROCHLORIDE\OMEPRAZOLE\OMEPRAZOLE MAGNESIUM
     Route: 050
     Dates: start: 20141031
  35. AMLODIPINE BESYLATE [Concomitant]
     Active Substance: AMLODIPINE BESYLATE
     Indication: Product used for unknown indication
     Route: 050
     Dates: start: 20120814
  36. TRAZODONE HYDROCHLORIDE [Concomitant]
     Active Substance: TRAZODONE HYDROCHLORIDE
     Indication: Product used for unknown indication
     Route: 050
     Dates: start: 20120814
  37. TRAZODONE HYDROCHLORIDE [Concomitant]
     Active Substance: TRAZODONE HYDROCHLORIDE
     Route: 050
     Dates: start: 20130212
  38. TRAZODONE HYDROCHLORIDE [Concomitant]
     Active Substance: TRAZODONE HYDROCHLORIDE
     Route: 050
     Dates: start: 20130813
  39. TRAZODONE HYDROCHLORIDE [Concomitant]
     Active Substance: TRAZODONE HYDROCHLORIDE
     Route: 050
     Dates: start: 20140211
  40. TRAZODONE HYDROCHLORIDE [Concomitant]
     Active Substance: TRAZODONE HYDROCHLORIDE
     Route: 050
     Dates: start: 20140425
  41. TRAZODONE HYDROCHLORIDE [Concomitant]
     Active Substance: TRAZODONE HYDROCHLORIDE
     Route: 050
     Dates: start: 20140916
  42. TRAZODONE HYDROCHLORIDE [Concomitant]
     Active Substance: TRAZODONE HYDROCHLORIDE
     Route: 050
     Dates: start: 20140926
  43. TRAZODONE HYDROCHLORIDE [Concomitant]
     Active Substance: TRAZODONE HYDROCHLORIDE
     Route: 050
     Dates: start: 20141031
  44. FENOFIBRATE [Concomitant]
     Active Substance: FENOFIBRATE
     Indication: Product used for unknown indication
     Route: 050
     Dates: start: 20120814
  45. FENOFIBRATE [Concomitant]
     Active Substance: FENOFIBRATE
     Route: 050
     Dates: start: 20130212
  46. VENLAFAXINE HYDROCHLORIDE [Concomitant]
     Active Substance: VENLAFAXINE HYDROCHLORIDE
     Indication: Product used for unknown indication
     Route: 050
     Dates: start: 20120814
  47. VENLAFAXINE HYDROCHLORIDE [Concomitant]
     Active Substance: VENLAFAXINE HYDROCHLORIDE
     Route: 050
     Dates: start: 20130212
  48. VENLAFAXINE HYDROCHLORIDE [Concomitant]
     Active Substance: VENLAFAXINE HYDROCHLORIDE
     Route: 050
     Dates: start: 20130813
  49. VENLAFAXINE HYDROCHLORIDE [Concomitant]
     Active Substance: VENLAFAXINE HYDROCHLORIDE
     Route: 050
     Dates: start: 20140211
  50. VENLAFAXINE HYDROCHLORIDE [Concomitant]
     Active Substance: VENLAFAXINE HYDROCHLORIDE
     Route: 050
     Dates: start: 20140425
  51. VENLAFAXINE HYDROCHLORIDE [Concomitant]
     Active Substance: VENLAFAXINE HYDROCHLORIDE
     Route: 050
     Dates: start: 20140916
  52. VENLAFAXINE HYDROCHLORIDE [Concomitant]
     Active Substance: VENLAFAXINE HYDROCHLORIDE
     Route: 050
     Dates: start: 20140926
  53. COPAXONE [Concomitant]
     Active Substance: GLATIRAMER ACETATE
     Indication: Product used for unknown indication
     Route: 050
     Dates: start: 20120814
  54. COPAXONE [Concomitant]
     Active Substance: GLATIRAMER ACETATE
     Route: 050
     Dates: start: 20130212
  55. COPAXONE [Concomitant]
     Active Substance: GLATIRAMER ACETATE
     Route: 050
     Dates: start: 20130813
  56. COPAXONE [Concomitant]
     Active Substance: GLATIRAMER ACETATE
     Route: 050
     Dates: start: 20140211
  57. COPAXONE [Concomitant]
     Active Substance: GLATIRAMER ACETATE
     Route: 050
     Dates: start: 20140425
  58. COPAXONE [Concomitant]
     Active Substance: GLATIRAMER ACETATE
     Route: 050
     Dates: start: 20140916
  59. COPAXONE [Concomitant]
     Active Substance: GLATIRAMER ACETATE
     Route: 050
     Dates: start: 20140926
  60. COPAXONE [Concomitant]
     Active Substance: GLATIRAMER ACETATE
     Route: 050
     Dates: start: 20141031
  61. PROVIGIL [Concomitant]
     Active Substance: MODAFINIL
     Indication: Product used for unknown indication
     Dosage: QAM, MAY REPEAT X 1, NO LATER THAN 2 PM
     Route: 050
     Dates: start: 20120814
  62. PROVIGIL [Concomitant]
     Active Substance: MODAFINIL
     Dosage: QAM, MAY REPEAT X 1, NO LATER THAN 2 PM
     Route: 050
     Dates: start: 20130212
  63. PROVIGIL [Concomitant]
     Active Substance: MODAFINIL
     Dosage: QAM, MAY REPEAT X 1, NO LATER THAN 2 PM
     Route: 050
     Dates: start: 20130813
  64. PROVIGIL [Concomitant]
     Active Substance: MODAFINIL
     Dosage: QAM, MAY REPEAT X 1, NO LATER THAN 2 PM
     Route: 050
     Dates: start: 20140211
  65. PROVIGIL [Concomitant]
     Active Substance: MODAFINIL
     Dosage: QAM, MAY REPEAT X 1, NO LATER THAN 2 PM
     Route: 050
     Dates: start: 20140425
  66. PROVIGIL [Concomitant]
     Active Substance: MODAFINIL
     Dosage: QAM, MAY REPEAT X 1, NO LATER THAN 2 PM
     Route: 050
     Dates: start: 20140916
  67. PROVIGIL [Concomitant]
     Active Substance: MODAFINIL
     Dosage: QAM, MAY REPEAT X 1, NO LATER THAN 2 PM
     Route: 050
     Dates: start: 20140926
  68. PROVIGIL [Concomitant]
     Active Substance: MODAFINIL
     Dosage: QAM, MAY REPEAT X 1, NO LATER THAN 2 PM
     Route: 050
     Dates: start: 20141031
  69. BISOPROLOL FUMARATE\HYDROCHLOROTHIAZIDE [Concomitant]
     Active Substance: BISOPROLOL FUMARATE\HYDROCHLOROTHIAZIDE
     Indication: Product used for unknown indication
     Dosage: 5 TO 6.25 MILLIGRAMS
     Route: 050
     Dates: start: 20120814
  70. VALIUM [Concomitant]
     Active Substance: DIAZEPAM
     Indication: Product used for unknown indication
     Dosage: 30 MINUTES BEFORE MRI
     Route: 050
     Dates: start: 20120814
  71. VALIUM [Concomitant]
     Active Substance: DIAZEPAM
     Dosage: 30 MINUTES BEFORE MRI
     Route: 050
     Dates: start: 20130212
  72. VALIUM [Concomitant]
     Active Substance: DIAZEPAM
     Dosage: 30 MINUTES BEFORE MRI
     Route: 050
     Dates: start: 20130813
  73. VALIUM [Concomitant]
     Active Substance: DIAZEPAM
     Dosage: 30 MINUTES BEFORE MRI
     Route: 050
     Dates: start: 20140211
  74. VALIUM [Concomitant]
     Active Substance: DIAZEPAM
     Dosage: 30 MINUTES BEFORE MRI
     Route: 050
     Dates: start: 20140425
  75. REQUIP [Concomitant]
     Active Substance: ROPINIROLE HYDROCHLORIDE
     Indication: Product used for unknown indication
     Dosage: 1-2 QHS
     Route: 050
     Dates: start: 20130212
  76. REQUIP [Concomitant]
     Active Substance: ROPINIROLE HYDROCHLORIDE
     Dosage: QHS
     Route: 050
     Dates: start: 20130813
  77. REQUIP [Concomitant]
     Active Substance: ROPINIROLE HYDROCHLORIDE
     Dosage: 1-2 QHS
     Route: 050
     Dates: start: 20140211
  78. REQUIP [Concomitant]
     Active Substance: ROPINIROLE HYDROCHLORIDE
     Dosage: QHS
     Route: 050
     Dates: start: 20140211
  79. REQUIP [Concomitant]
     Active Substance: ROPINIROLE HYDROCHLORIDE
     Dosage: QHS
     Route: 050
     Dates: start: 20140211
  80. REQUIP [Concomitant]
     Active Substance: ROPINIROLE HYDROCHLORIDE
     Dosage: QHS
     Route: 050
     Dates: start: 20130813
  81. REQUIP [Concomitant]
     Active Substance: ROPINIROLE HYDROCHLORIDE
     Dosage: QHS
     Route: 050
     Dates: start: 20140425
  82. REQUIP [Concomitant]
     Active Substance: ROPINIROLE HYDROCHLORIDE
     Dosage: QHS
     Route: 050
     Dates: start: 20140916
  83. REQUIP [Concomitant]
     Active Substance: ROPINIROLE HYDROCHLORIDE
     Dosage: QHS
     Route: 050
     Dates: start: 20140926
  84. REQUIP [Concomitant]
     Active Substance: ROPINIROLE HYDROCHLORIDE
     Dosage: QHS
     Route: 050
     Dates: start: 20141031
  85. SOLU-MEDROL [Concomitant]
     Active Substance: METHYLPREDNISOLONE SODIUM SUCCINATE
     Indication: Multiple sclerosis
     Dosage: INFUSE OVER 1.5 - 2 HOURS AS TOLERATED
     Route: 050
     Dates: start: 20140425
  86. SOLU-MEDROL [Concomitant]
     Active Substance: METHYLPREDNISOLONE SODIUM SUCCINATE
     Dosage: INFUSE OVER 1.5 - 2 HOURS AS TOLERATED
     Route: 050
     Dates: start: 20140916
  87. CYMBALTA [Concomitant]
     Active Substance: DULOXETINE HYDROCHLORIDE
     Indication: Product used for unknown indication
     Route: 050
     Dates: start: 20140926
  88. CYMBALTA [Concomitant]
     Active Substance: DULOXETINE HYDROCHLORIDE
     Route: 050
     Dates: start: 20140926
  89. CYMBALTA [Concomitant]
     Active Substance: DULOXETINE HYDROCHLORIDE
     Route: 050
     Dates: start: 20141031

REACTIONS (1)
  - Invasive lobular breast carcinoma [Unknown]

NARRATIVE: CASE EVENT DATE: 20220501
